FAERS Safety Report 15195012 (Version 5)
Quarter: 2020Q1

REPORT INFORMATION
  Report Type: Spontaneous
  Country: US (occurrence: US)
  Receive Date: 20180725
  Receipt Date: 20200302
  Transmission Date: 20200409
  Serious: No
  Sender: FDA-Public Use
  Company Number: US-SA-2018SA193426

PATIENT
  Age: 62 Year
  Sex: Female

DRUGS (1)
  1. ALLEGRA-D 24 HOUR [Suspect]
     Active Substance: FEXOFENADINE HYDROCHLORIDE\PSEUDOEPHEDRINE HYDROCHLORIDE
     Indication: HYPERSENSITIVITY
     Dosage: 180 MG, QD
     Route: 065

REACTIONS (6)
  - Product packaging issue [Unknown]
  - Drug ineffective [Unknown]
  - Product odour abnormal [Unknown]
  - Diarrhoea [Unknown]
  - Nausea [Unknown]
  - Product storage error [Unknown]
